FAERS Safety Report 7548844-1 (Version None)
Quarter: 2011Q2

REPORT INFORMATION
  Report Type: 
  Country: None (occurrence: None)
  Receive Date: 20110615
  Receipt Date: 20110609
  Transmission Date: 20111010
  Serious: Yes (Death)
  Sender: FDA-Public Use
  Company Number: US-PFIZER INC-2011126935

PATIENT
  Sex: Male

DRUGS (2)
  1. RAPAMUNE [Suspect]
     Indication: METASTATIC MALIGNANT MELANOMA
     Dosage: UNK
     Dates: start: 20110415, end: 20110426
  2. IPILIMUMAB [Concomitant]
     Indication: METASTATIC MALIGNANT MELANOMA
     Dosage: 250 MG, EVERY 3 WEEKS

REACTIONS (1)
  - DEATH [None]
